FAERS Safety Report 6635150-2 (Version None)
Quarter: 2010Q1

REPORT INFORMATION
  Report Type: 
  Country: None (occurrence: None)
  Receive Date: 20100315
  Receipt Date: 20100308
  Transmission Date: 20100710
  Serious: Yes (Hospitalization)
  Sender: FDA-Public Use
  Company Number: PHHO2010DK00635

PATIENT
  Sex: Male
  Weight: 76.6 kg

DRUGS (7)
  1. BLINDED ALISKIREN ALI+TAB+CF [Suspect]
     Dosage: CODE NOT BROKEN
     Route: 048
     Dates: start: 20091221, end: 20100111
  2. BLINDED ENALAPRIL COMP-ENA+ [Suspect]
     Dosage: CODE NOT BROKEN
     Route: 048
     Dates: start: 20091221, end: 20100111
  3. BLINDED NO TREATMENT RECEIVED NOMED [Suspect]
     Dosage: CODE NOT BROKEN
     Route: 048
     Dates: start: 20091221, end: 20100111
  4. RASILEZ [Suspect]
     Indication: CARDIAC FAILURE
     Dosage: UNK
     Dates: start: 20091208
  5. COMPARATOR ENALAPRIL [Suspect]
     Indication: CARDIAC FAILURE
     Dosage: UNK
     Dates: start: 20091127
  6. POTASSIUM [Concomitant]
  7. FRUSEMIDE [Concomitant]

REACTIONS (1)
  - HYPERKALAEMIA [None]
